FAERS Safety Report 4982776-8 (Version None)
Quarter: 2006Q2

REPORT INFORMATION
  Report Type: 
  Country: None (occurrence: None)
  Receive Date: 20060425
  Receipt Date: 20050415
  Transmission Date: 20061013
  Serious: Yes (Hospitalization, Other)
  Sender: FDA-Public Use
  Company Number: US-MERCK-0504USA03262

PATIENT
  Age: 39 Year
  Sex: Female
  Weight: 73 kg

DRUGS (1)
  1. VIOXX [Suspect]
     Indication: PAIN IN EXTREMITY
     Route: 048
     Dates: start: 20000101, end: 20030101

REACTIONS (15)
  - ASTHENIA [None]
  - BACK INJURY [None]
  - BREAST ABSCESS [None]
  - BREAST DISCHARGE [None]
  - BREAST HAEMORRHAGE [None]
  - BREAST PAIN [None]
  - CEREBROVASCULAR ACCIDENT [None]
  - FALL [None]
  - HOT FLUSH [None]
  - HYPERHIDROSIS [None]
  - LUNG DISORDER [None]
  - MENOMETRORRHAGIA [None]
  - PAIN IN EXTREMITY [None]
  - SCIATICA [None]
  - UTERINE LEIOMYOMA [None]
